FAERS Safety Report 23148508 (Version 2)
Quarter: 2023Q4

REPORT INFORMATION
  Report Type: Spontaneous
  Country: BE (occurrence: BE)
  Receive Date: 20231106
  Receipt Date: 20231204
  Transmission Date: 20240110
  Serious: Yes (Other)
  Sender: FDA-Public Use
  Company Number: BE-CHEPLA-2023013876

PATIENT
  Age: 20 Year
  Sex: Female

DRUGS (21)
  1. GANCICLOVIR [Suspect]
     Active Substance: GANCICLOVIR
     Indication: Cytomegalovirus infection reactivation
     Dosage: DAY 35-69 AND DAY 73-127
  2. ETOPOSIDE [Suspect]
     Active Substance: ETOPOSIDE
     Indication: Haemophagocytic lymphohistiocytosis
     Dosage: 100 MG/M2 (BODY SURFACE), TWICE WEEKLY DURING THE FIRST TWO WEEKS AND ONCE WEEKLY FOR THE 6 FOLLO...
  3. ETOPOSIDE [Suspect]
     Active Substance: ETOPOSIDE
     Indication: Haemophagocytic lymphohistiocytosis
     Dosage: RESTARTED (DAY 135)
  4. METHYLPREDNISOLONE [Suspect]
     Active Substance: METHYLPREDNISOLONE
     Indication: Haemophagocytic lymphohistiocytosis
     Dosage: IN 2019 AND 2020
  5. METHYLPREDNISOLONE [Suspect]
     Active Substance: METHYLPREDNISOLONE
     Indication: Still^s disease
     Dosage: IN 2019 AND 2020
  6. METHYLPREDNISOLONE [Suspect]
     Active Substance: METHYLPREDNISOLONE
     Indication: Haemophagocytic lymphohistiocytosis
     Dosage: 3 DAYS, 500 MG IV WITH TAPERING SCHEDULE AFTERWARDS
     Route: 042
  7. METHYLPREDNISOLONE [Suspect]
     Active Substance: METHYLPREDNISOLONE
     Indication: Still^s disease
     Dosage: 3 DAYS, 500 MG IV WITH TAPERING SCHEDULE AFTERWARDS
     Route: 042
  8. METHYLPREDNISOLONE [Suspect]
     Active Substance: METHYLPREDNISOLONE
     Indication: Haemophagocytic lymphohistiocytosis
     Dosage: HIGH DOSE SOLUBLE
  9. METHYLPREDNISOLONE [Suspect]
     Active Substance: METHYLPREDNISOLONE
     Indication: Still^s disease
     Dosage: HIGH DOSE SOLUBLE
  10. ANAKINRA [Suspect]
     Active Substance: ANAKINRA
     Indication: Still^s disease
     Dosage: IN 2019 AND 2020
  11. TOCILIZUMAB [Suspect]
     Active Substance: TOCILIZUMAB
     Indication: Still^s disease
     Dosage: IN 2019 AND 2020
  12. CYCLOSPORINE [Suspect]
     Active Substance: CYCLOSPORINE
     Indication: Haemophagocytic lymphohistiocytosis
     Dosage: STARTED ON DAY 17
  13. DEXAMETHASONE [Suspect]
     Active Substance: DEXAMETHASONE
     Indication: Haemophagocytic lymphohistiocytosis
     Dosage: TWICE DAILY?DAILY DOSE: 40 MILLIGRAM
  14. DEXAMETHASONE [Suspect]
     Active Substance: DEXAMETHASONE
     Indication: Haemophagocytic lymphohistiocytosis
     Dosage: DAILY DOSE: 2.5 MILLIGRAM
  15. DEXAMETHASONE [Suspect]
     Active Substance: DEXAMETHASONE
     Indication: Haemophagocytic lymphohistiocytosis
     Dosage: INCREASED
  16. EPOPROSTENOL [Suspect]
     Active Substance: EPOPROSTENOL
     Indication: Cor pulmonale
     Dosage: DAY 88
  17. MACITENTAN [Suspect]
     Active Substance: MACITENTAN
     Indication: Cor pulmonale
     Dosage: DAY 88
  18. TADALAFIL [Suspect]
     Active Substance: TADALAFIL
     Indication: Cor pulmonale
     Dosage: DAY 114
  19. TOFACITINIB [Suspect]
     Active Substance: TOFACITINIB
     Indication: Haemophagocytic lymphohistiocytosis
     Dosage: DAY 94
  20. PIPERACILLIN AND TAZOBACTAM [Suspect]
     Active Substance: PIPERACILLIN SODIUM\TAZOBACTAM SODIUM
     Indication: Still^s disease
     Dosage: DAY 142
  21. FOSCARNET [Suspect]
     Active Substance: FOSCARNET
     Indication: Cytomegalovirus infection reactivation
     Dosage: DAY 127

REACTIONS (5)
  - Extremity necrosis [Unknown]
  - Condition aggravated [Unknown]
  - Cytomegalovirus infection reactivation [Unknown]
  - Drug resistance [Unknown]
  - Off label use [Unknown]
